FAERS Safety Report 17706799 (Version 14)
Quarter: 2023Q1

REPORT INFORMATION
  Report Type: Spontaneous
  Country: US (occurrence: US)
  Receive Date: 20200424
  Receipt Date: 20230222
  Transmission Date: 20230417
  Serious: Yes (Other)
  Sender: FDA-Public Use
  Company Number: US-AMGEN-USASP2020066501

PATIENT
  Age: 80 Year
  Sex: Male
  Weight: 86.17 kg

DRUGS (27)
  1. XGEVA [Suspect]
     Active Substance: DENOSUMAB
     Indication: Prostate cancer metastatic
     Dosage: UNK, QMO
     Route: 065
  2. XGEVA [Suspect]
     Active Substance: DENOSUMAB
     Indication: Bone disorder
  3. XTANDI [Suspect]
     Active Substance: ENZALUTAMIDE
     Indication: Hormone-refractory prostate cancer
     Dosage: 160 MILLIGRAM, QD
     Route: 048
     Dates: start: 201806, end: 20221003
  4. XTANDI [Suspect]
     Active Substance: ENZALUTAMIDE
     Dosage: 160 MILLIGRAM, QD
     Route: 048
  5. XTANDI [Suspect]
     Active Substance: ENZALUTAMIDE
     Dosage: 160 MILLIGRAM, QD
     Route: 048
  6. XTANDI [Suspect]
     Active Substance: ENZALUTAMIDE
     Dosage: 160 MILLIGRAM, QD
     Route: 048
  7. XTANDI [Suspect]
     Active Substance: ENZALUTAMIDE
     Dosage: 160 MILLIGRAM, QD
     Route: 048
  8. XTANDI [Suspect]
     Active Substance: ENZALUTAMIDE
     Dosage: 160 MILLIGRAM, QD
     Route: 048
  9. XTANDI [Suspect]
     Active Substance: ENZALUTAMIDE
     Dosage: 160 MILLIGRAM, QD
     Route: 048
  10. XTANDI [Suspect]
     Active Substance: ENZALUTAMIDE
     Dosage: 160 MILLIGRAM, QD
     Route: 048
  11. XTANDI [Suspect]
     Active Substance: ENZALUTAMIDE
     Dosage: 160 MILLIGRAM, QD
     Route: 048
  12. JANUMET [Concomitant]
     Active Substance: METFORMIN HYDROCHLORIDE\SITAGLIPTIN PHOSPHATE
     Dosage: UNK
  13. METFORMIN [Concomitant]
     Active Substance: METFORMIN HYDROCHLORIDE
     Dosage: UNK
  14. ALLOPURINOL [Concomitant]
     Active Substance: ALLOPURINOL
     Dosage: UNK
  15. EZETIMIBE\SIMVASTATIN [Concomitant]
     Active Substance: EZETIMIBE\SIMVASTATIN
     Dosage: UNK
  16. ENALAPRIL MALEATE [Concomitant]
     Active Substance: ENALAPRIL MALEATE
     Dosage: 20 MILLIGRAM
  17. VITAMIN D3 [Concomitant]
     Active Substance: CHOLECALCIFEROL
     Dosage: UNK
  18. CITRICAL D [Concomitant]
     Dosage: UNK
  19. LUPRON [Concomitant]
     Active Substance: LEUPROLIDE ACETATE
     Dosage: UNK
  20. MYRBETRIQ [Concomitant]
     Active Substance: MIRABEGRON
     Dosage: UNK
  21. CALCIUM CITRATE [Concomitant]
     Active Substance: CALCIUM CITRATE
     Dosage: UNK
  22. Citracal + D3 [Concomitant]
     Dosage: UNK
  23. CEPHALEXIN [Concomitant]
     Active Substance: CEPHALEXIN
     Dosage: UNK
  24. ELIGARD [Concomitant]
     Active Substance: LEUPROLIDE ACETATE
  25. PREDNISONE [Concomitant]
     Active Substance: PREDNISONE
     Dosage: 5 MILLIGRAM
  26. METFORMIN HYDROCHLORIDE [Concomitant]
     Active Substance: METFORMIN HYDROCHLORIDE
     Dosage: 500 MILLIGRAM
  27. LEUPROLIDE ACETATE [Concomitant]
     Active Substance: LEUPROLIDE ACETATE
     Dosage: UNK

REACTIONS (7)
  - Root canal infection [Recovered/Resolved]
  - Tooth fracture [Recovered/Resolved]
  - Swelling face [Recovered/Resolved]
  - Urinary tract infection [Recovered/Resolved]
  - Prostatic specific antigen increased [Recovered/Resolved]
  - Contusion [Recovered/Resolved]
  - Diarrhoea [Recovered/Resolved]

NARRATIVE: CASE EVENT DATE: 20200101
